FAERS Safety Report 9813210 (Version 2)
Quarter: 2014Q1

REPORT INFORMATION
  Report Type: Spontaneous
  Country: US (occurrence: US)
  Receive Date: 20140113
  Receipt Date: 20140113
  Transmission Date: 20141002
  Serious: Yes (Other)
  Sender: FDA-Public Use
  Company Number: US-GE HEALTHCARE MEDICAL DIAGNOSTICS-OSCN-PR-0905S-0255

PATIENT
  Age: 54 Year
  Sex: Male

DRUGS (5)
  1. OMNISCAN [Suspect]
     Indication: MUSCULOSKELETAL PAIN
     Route: 042
     Dates: start: 20080915, end: 20080915
  2. OMNISCAN [Suspect]
     Indication: NECROTISING FASCIITIS
     Route: 042
     Dates: start: 20080420, end: 20080420
  3. GADOLINIUM (UNSPECIFIED) [Suspect]
     Indication: NECROTISING FASCIITIS
     Route: 042
     Dates: start: 20070523, end: 20070523
  4. GADOLINIUM (UNSPECIFIED) [Suspect]
     Indication: PRODUCT USED FOR UNKNOWN INDICATION
     Route: 042
     Dates: start: 20080407, end: 20080407
  5. GADOLINIUM (UNSPECIFIED) [Suspect]
     Indication: OSTEOMYELITIS
     Route: 042
     Dates: start: 20080420, end: 20080420

REACTIONS (1)
  - Nephrogenic systemic fibrosis [Not Recovered/Not Resolved]
